FAERS Safety Report 4404122-0 (Version None)
Quarter: 2004Q3

REPORT INFORMATION
  Report Type: 
  Country: None (occurrence: None)
  Receive Date: 20040719
  Receipt Date: 20040709
  Transmission Date: 20050211
  Serious: Yes (Life-Threatening, Hospitalization, Other)
  Sender: FDA-Public Use
  Company Number: 2004-07-0077

PATIENT
  Age: 53 Year
  Sex: Male
  Weight: 67 kg

DRUGS (4)
  1. INTRON A [Suspect]
     Indication: HEPATITIS C
     Dosage: 10-6 MU INTRAMUSCULAR; SEE IMAGE
     Route: 030
     Dates: start: 20040206, end: 20040612
  2. STRONG NEO-MINOPHAGEN C [Concomitant]
  3. URSO TABLETS [Concomitant]
  4. LANSOPRAZOLE [Concomitant]

REACTIONS (7)
  - CEREBRAL HAEMORRHAGE TRAUMATIC [None]
  - FALL [None]
  - MEMORY IMPAIRMENT [None]
  - PLATELET COUNT DECREASED [None]
  - PUTAMEN HAEMORRHAGE [None]
  - ROAD TRAFFIC ACCIDENT [None]
  - WHITE BLOOD CELL COUNT DECREASED [None]
